FAERS Safety Report 20461465 (Version 3)
Quarter: 2024Q2

REPORT INFORMATION
  Report Type: Spontaneous
  Country: US (occurrence: US)
  Receive Date: 20220211
  Receipt Date: 20240625
  Transmission Date: 20240716
  Serious: Yes (Other)
  Sender: FDA-Public Use
  Company Number: US-PFIZER INC-202200165809

PATIENT
  Age: 54 Year
  Sex: Female

DRUGS (7)
  1. IBRANCE [Suspect]
     Active Substance: PALBOCICLIB
     Indication: Breast cancer female
     Dosage: 75 MG, CYCLIC (1 TABLET DAILY FOR 21 DAYS OF A 28 DAY SCHEDULE)
     Dates: start: 201606
  2. IBRANCE [Suspect]
     Active Substance: PALBOCICLIB
     Dosage: 75 MG, CYCLIC (3 WEEKS ON, ONE WEEK OFF)
     Route: 048
     Dates: start: 20191219, end: 202406
  3. CLARITIN [Concomitant]
     Active Substance: LORATADINE
     Dosage: UNK
  4. MOMETASONE FUROATE [Concomitant]
     Active Substance: MOMETASONE FUROATE
     Dosage: UNK
  5. LETROZOLE [Concomitant]
     Active Substance: LETROZOLE
     Dosage: UNK
  6. BIFIDOBACTERIUM SPP.\LACTOBACILLUS ACIDOPHILUS [Concomitant]
     Active Substance: BIFIDOBACTERIUM SPP.\LACTOBACILLUS ACIDOPHILUS
     Dosage: UNK
  7. VITAMIN D3 [Concomitant]
     Active Substance: CHOLECALCIFEROL
     Dosage: UNK

REACTIONS (3)
  - COVID-19 [Unknown]
  - Eye infection [Recovered/Resolved]
  - Ear infection [Recovered/Resolved]
